FAERS Safety Report 16071625 (Version 1)
Quarter: 2019Q1

REPORT INFORMATION
  Report Type: Report from Study
  Country: MX (occurrence: MX)
  Receive Date: 20190314
  Receipt Date: 20190314
  Transmission Date: 20190418
  Serious: Yes (Other)
  Sender: FDA-Public Use
  Company Number: MX-SA-2018SA177735

PATIENT
  Age: 46 Year
  Sex: Female
  Weight: 71 kg

DRUGS (2)
  1. ALEMTUZUMAB [Suspect]
     Active Substance: ALEMTUZUMAB
     Dosage: 12 MG (1 VIAL), QD
     Route: 041
  2. ALEMTUZUMAB [Suspect]
     Active Substance: ALEMTUZUMAB
     Indication: MULTIPLE SCLEROSIS
     Dosage: 12 MG (1 VIAL), QD
     Route: 041
     Dates: start: 2015

REACTIONS (19)
  - Monocyte percentage increased [Unknown]
  - White blood cell count decreased [Not Recovered/Not Resolved]
  - Blood thyroid stimulating hormone decreased [Not Recovered/Not Resolved]
  - Red blood cell count increased [Unknown]
  - Red cell distribution width increased [Unknown]
  - Gait disturbance [Not Recovered/Not Resolved]
  - Free thyroxine index increased [Not Recovered/Not Resolved]
  - Multiple sclerosis relapse [Unknown]
  - Thyroxine increased [Not Recovered/Not Resolved]
  - Lymphocyte count decreased [Not Recovered/Not Resolved]
  - Thyroglobulin increased [Unknown]
  - Mean cell volume decreased [Unknown]
  - Asthenia [Not Recovered/Not Resolved]
  - Herpes zoster [Unknown]
  - Thyroxine free increased [Not Recovered/Not Resolved]
  - Neutrophil count decreased [Unknown]
  - Blood creatinine decreased [Not Recovered/Not Resolved]
  - Tri-iodothyronine increased [Not Recovered/Not Resolved]
  - Lymphocyte percentage decreased [Not Recovered/Not Resolved]

NARRATIVE: CASE EVENT DATE: 20181001
